FAERS Safety Report 25749009 (Version 3)
Quarter: 2025Q4

REPORT INFORMATION
  Report Type: Spontaneous
  Country: EU (occurrence: EU)
  Receive Date: 20250902
  Receipt Date: 20251222
  Transmission Date: 20260118
  Serious: Yes (Other)
  Sender: IMMUNOCORE
  Company Number: EU-Medison-001530

PATIENT

DRUGS (1)
  1. KIMMTRAK [Suspect]
     Active Substance: TEBENTAFUSP-TEBN
     Indication: Metastatic ocular melanoma
     Dosage: DOSAGE: WEEKLY, I.V., 20-}30-}68 MCGLAST ADMINISTRATION DATE: PROBABLY 27-AUG-2025 OR 03-SEP-2025
     Dates: start: 20250813

REACTIONS (3)
  - Incorrect dose administered [Recovering/Resolving]
  - Cytokine release syndrome [Recovered/Resolved]
  - C-reactive protein increased [Recovered/Resolved]

NARRATIVE: CASE EVENT DATE: 20250813
